FAERS Safety Report 21515030 (Version 1)
Quarter: 2022Q4

REPORT INFORMATION
  Report Type: Spontaneous
  Country: US (occurrence: US)
  Receive Date: 20221027
  Receipt Date: 20221027
  Transmission Date: 20230112
  Serious: No
  Sender: FDA-Public Use
  Company Number: US-UPSHER-SMITH LABORATORIES, LLC-2021USL00867

PATIENT
  Age: 92 Year
  Sex: Male
  Weight: 77.098 kg

DRUGS (4)
  1. JANTOVEN [Suspect]
     Active Substance: WARFARIN SODIUM
     Indication: Atrial fibrillation
     Dosage: 7.5 MG, 5X/WEEK
     Route: 048
     Dates: end: 2021
  2. JANTOVEN [Suspect]
     Active Substance: WARFARIN SODIUM
     Indication: Heart valve replacement
     Dosage: 7.5 MG, 4X/WEEK
     Route: 048
     Dates: start: 2021
  3. JANTOVEN [Suspect]
     Active Substance: WARFARIN SODIUM
     Indication: Atrial fibrillation
     Dosage: 5 MG, 2X/WEEK
     Route: 048
     Dates: end: 2021
  4. JANTOVEN [Suspect]
     Active Substance: WARFARIN SODIUM
     Indication: Heart valve replacement
     Dosage: 5 MG, 3X/WEEK
     Route: 048
     Dates: start: 2021

REACTIONS (1)
  - International normalised ratio fluctuation [Not Recovered/Not Resolved]

NARRATIVE: CASE EVENT DATE: 20211101
